FAERS Safety Report 9169511 (Version 1)
Quarter: 2013Q1

REPORT INFORMATION
  Report Type: Spontaneous
  Country: DE (occurrence: DE)
  Receive Date: 20130318
  Receipt Date: 20130318
  Transmission Date: 20140127
  Serious: Yes (Hospitalization, Other)
  Sender: FDA-Public Use
  Company Number: DE-ELI_LILLY_AND_COMPANY-DE201303001759

PATIENT
  Sex: Female

DRUGS (11)
  1. FORSTEO [Suspect]
     Indication: OSTEOPOROSIS
     Dosage: UNK UNK, QD
     Route: 058
     Dates: start: 20111216
  2. CALCIUM [Concomitant]
  3. FORMATRIS [Concomitant]
     Dosage: UNK, BID
  4. MIFLONIDE [Concomitant]
     Dosage: UNK, BID
  5. SPIRIVA [Concomitant]
     Dosage: UNK, EACH MORNING
  6. SALBUTAMOL [Concomitant]
     Dosage: UNK, PRN
  7. SIMVABETA [Concomitant]
     Dosage: UNK, EACH EVENING
  8. ASS [Concomitant]
     Dosage: UNK UNK, EACH MORNING
  9. BISOPROLOL [Concomitant]
     Dosage: UNK, BID
  10. PANTOPRAZOL [Concomitant]
  11. YENTREVE [Concomitant]

REACTIONS (3)
  - Concussion [Not Recovered/Not Resolved]
  - Fall [Not Recovered/Not Resolved]
  - Contusion [Not Recovered/Not Resolved]
